FAERS Safety Report 17213677 (Version 2)
Quarter: 2020Q2

REPORT INFORMATION
  Report Type: Spontaneous
  Country: US (occurrence: US)
  Receive Date: 20191230
  Receipt Date: 20200619
  Transmission Date: 20200713
  Serious: No
  Sender: FDA-Public Use
  Company Number: US-JNJFOC-20191211266

PATIENT
  Age: 58 Year
  Sex: Female
  Weight: 53.12 kg

DRUGS (8)
  1. DARZALEX [Suspect]
     Active Substance: DARATUMUMAB
     Route: 042
  2. BENADRYL [Suspect]
     Active Substance: DIPHENHYDRAMINE HYDROCHLORIDE
     Indication: PRODUCT USED FOR UNKNOWN INDICATION
     Route: 042
  3. DEXAMETHASONE. [Suspect]
     Active Substance: DEXAMETHASONE
     Indication: PRODUCT USED FOR UNKNOWN INDICATION
     Route: 042
  4. SINGULAIR [Suspect]
     Active Substance: MONTELUKAST SODIUM
     Indication: PRODUCT USED FOR UNKNOWN INDICATION
     Route: 065
  5. REVLIMID [Suspect]
     Active Substance: LENALIDOMIDE
     Indication: PRODUCT USED FOR UNKNOWN INDICATION
     Route: 065
  6. TYLENOL [Suspect]
     Active Substance: ACETAMINOPHEN
     Indication: PRODUCT USED FOR UNKNOWN INDICATION
     Route: 048
  7. DARZALEX [Suspect]
     Active Substance: DARATUMUMAB
     Indication: PRODUCT USED FOR UNKNOWN INDICATION
     Route: 042
     Dates: start: 20191024
  8. DARZALEX [Suspect]
     Active Substance: DARATUMUMAB
     Route: 042

REACTIONS (14)
  - Fatigue [Not Recovered/Not Resolved]
  - Peripheral swelling [Not Recovered/Not Resolved]
  - Back pain [Not Recovered/Not Resolved]
  - Weight increased [Unknown]
  - Pyrexia [Unknown]
  - Rash [Not Recovered/Not Resolved]
  - Hyperkeratosis [Not Recovered/Not Resolved]
  - Swelling face [Not Recovered/Not Resolved]
  - Haemangioma [Unknown]
  - Skin discolouration [Not Recovered/Not Resolved]
  - Dry skin [Not Recovered/Not Resolved]
  - Oedema [Not Recovered/Not Resolved]
  - Somnolence [Unknown]
  - Neoplasm [Unknown]

NARRATIVE: CASE EVENT DATE: 2019
